FAERS Safety Report 4642197-4 (Version None)
Quarter: 2005Q2

REPORT INFORMATION
  Report Type: 
  Country: None (occurrence: None)
  Receive Date: 20050422
  Receipt Date: 20050419
  Transmission Date: 20051028
  Serious: Yes (Other)
  Sender: FDA-Public Use
  Company Number: 200510767DE

PATIENT
  Age: 40 Year
  Sex: Female

DRUGS (3)
  1. CLEXANE [Suspect]
     Indication: EMBOLISM VENOUS
     Route: 058
     Dates: start: 20050315
  2. MARCUMAR [Concomitant]
     Indication: EMBOLISM VENOUS
     Route: 048
     Dates: start: 20040906, end: 20050307
  3. L-THYROXIN [Concomitant]
     Indication: AUTOIMMUNE THYROIDITIS
     Route: 048
     Dates: start: 20030415

REACTIONS (2)
  - ABORTION [None]
  - DRUG EXPOSURE DURING PREGNANCY [None]
